FAERS Safety Report 8844917 (Version 2)
Quarter: 2014Q2

REPORT INFORMATION
  Report Type: Spontaneous
  Country: GB (occurrence: GB)
  Receive Date: 20121017
  Receipt Date: 20131018
  Transmission Date: 20141212
  Serious: Yes (Hospitalization, Other)
  Sender: FDA-Public Use
  Company Number: GB-PFIZER INC-2012250674

PATIENT
  Age: 41 Year
  Sex: Female

DRUGS (1)
  1. DEPO-MEDRONE [Suspect]
     Indication: FACET JOINT BLOCK
     Dosage: 120 MG, UNK

REACTIONS (2)
  - Acute psychosis [Recovered/Resolved]
  - Suicidal ideation [Recovered/Resolved]
